FAERS Safety Report 9324918 (Version 1)
Quarter: 2013Q2

REPORT INFORMATION
  Report Type: Report from Study
  Country: JP (occurrence: JP)
  Receive Date: 20130603
  Receipt Date: 20130603
  Transmission Date: 20140414
  Serious: Yes (Hospitalization)
  Sender: FDA-Public Use
  Company Number: JP-ACTELION-A-CH2013-80308

PATIENT
  Age: 9 Month
  Sex: Female
  Weight: 3 kg

DRUGS (8)
  1. TRACLEER [Suspect]
     Indication: PULMONARY HYPERTENSION
     Dosage: 7.81 MG, QD
     Route: 048
     Dates: start: 20090612, end: 20110110
  2. FUROSEMIDE [Suspect]
     Indication: BRONCHOPULMONARY DYSPLASIA
     Dosage: 8 MG, QD
     Route: 048
     Dates: start: 20090406, end: 20110406
  3. BERAPROST SODIUM [Concomitant]
  4. THYROID [Concomitant]
  5. FLUTICASONE PROPIONATE [Concomitant]
  6. MILRINONE [Concomitant]
  7. NITRIC OXIDE [Concomitant]
  8. OXYGEN [Concomitant]

REACTIONS (6)
  - Pulmonary hypertension [Recovering/Resolving]
  - Right ventricular failure [Recovering/Resolving]
  - Concomitant disease aggravated [Recovering/Resolving]
  - Blood alkaline phosphatase increased [Recovered/Resolved]
  - White blood cell count increased [Recovered/Resolved]
  - Aspartate aminotransferase increased [Unknown]
